FAERS Safety Report 5286560-X (Version None)
Quarter: 2007Q2

REPORT INFORMATION
  Report Type: 
  Country: None (occurrence: None)
  Receive Date: 20070404
  Receipt Date: 20070323
  Transmission Date: 20071010
  Serious: Yes (Hospitalization)
  Sender: FDA-Public Use
  Company Number: CH-ELI_LILLY_AND_COMPANY-CH200702004479

PATIENT
  Age: 81 Year
  Sex: Female
  Weight: 46.1 kg

DRUGS (5)
  1. ZYPREXA [Suspect]
     Indication: MANIA
     Dosage: 5 MG, OTHER
     Route: 048
     Dates: start: 20060322, end: 20060322
  2. ZYPREXA [Suspect]
     Dosage: 10 MG, DAILY (1/D)
     Dates: start: 20060323, end: 20060405
  3. ZYPREXA [Suspect]
     Dosage: 7.5 MG, UNK
     Dates: start: 20060406, end: 20060406
  4. ASPIRIN [Concomitant]
     Dosage: 100 MG, DAILY (1/D)
     Route: 048
     Dates: start: 20000101
  5. TEMESTA [Concomitant]
     Dosage: 2.5 MG, DAILY (1/D)
     Route: 048
     Dates: start: 20060322, end: 20060322

REACTIONS (3)
  - DEHYDRATION [None]
  - DELIRIUM [None]
  - VASCULAR ENCEPHALOPATHY [None]
